FAERS Safety Report 6192184 (Version 3)
Quarter: 2013Q2

REPORT INFORMATION
  Report Type: Spontaneous
  Country: US (occurrence: US)
  Receive Date: 20061219
  Receipt Date: 20130507
  Transmission Date: 20140414
  Serious: Yes (Other)
  Sender: FDA-Public Use
  Company Number: US-ELI_LILLY_AND_COMPANY-US200612002329

PATIENT
  Age: 63 Year
  Sex: Male

DRUGS (2)
  1. HUMULIN 30% REGULAR, 70% NPH [Suspect]
     Indication: DIABETES MELLITUS
     Dosage: 35 U, EACH MORNING
  2. HUMULIN 30% REGULAR, 70% NPH [Suspect]
     Dosage: 25 U, EACH EVENING

REACTIONS (4)
  - Blindness [Not Recovered/Not Resolved]
  - Diabetic retinopathy [Unknown]
  - Blood glucose increased [Recovered/Resolved]
  - Memory impairment [Not Recovered/Not Resolved]
